FAERS Safety Report 8890645 (Version 2)
Quarter: 2012Q4

REPORT INFORMATION
  Report Type: 
  Country: US (occurrence: US)
  Receive Date: 20121106
  Receipt Date: 20121205
  Transmission Date: 20130627
  Serious: Yes (Hospitalization)
  Sender: FDA-Public Use
  Company Number: US-009507513-1211USA001113

PATIENT
  Sex: Female

DRUGS (22)
  1. SINGULAIR [Suspect]
     Indication: CHRONIC OBSTRUCTIVE PULMONARY DISEASE
     Dosage: 1 tablet once daily at bedtime
     Route: 048
  2. PREDNISONE [Concomitant]
  3. ATIVAN [Concomitant]
  4. TRAZODONE HYDROCHLORIDE [Concomitant]
  5. COMBIVENT [Concomitant]
  6. NORCO [Concomitant]
  7. BENZTROPINE MESYLATE [Concomitant]
  8. HALDOL [Concomitant]
  9. ABILIFY [Concomitant]
  10. DOCUSATE SODIUM [Concomitant]
  11. PROTONIX [Concomitant]
  12. HYDROCHLOROTHIAZIDE (+) TRIAMTERENE [Concomitant]
  13. BENAZEPRIL HYDROCHLORIDE [Concomitant]
  14. IPRATROPIUM BROMIDE [Concomitant]
  15. CEFTRIAXONE SODIUM [Concomitant]
  16. AZITHROMYCIN [Concomitant]
  17. ZOFRAN [Concomitant]
  18. TYLENOL [Concomitant]
  19. FLOVENT [Concomitant]
  20. MAGNESIA [MILK OF] [Concomitant]
  21. GUAIFENESIN [Concomitant]
  22. FLUZONE (INFLUENZA VIRUS SPLIT VIRION 3V VACCINE INACTIVATED) [Concomitant]

REACTIONS (2)
  - Mental disorder [Not Recovered/Not Resolved]
  - Off label use [Unknown]
